FAERS Safety Report 10164335 (Version 1)
Quarter: 2014Q2

REPORT INFORMATION
  Report Type: Spontaneous
  Country: US (occurrence: US)
  Receive Date: 20140510
  Receipt Date: 20140510
  Transmission Date: 20141212
  Serious: No
  Sender: FDA-Public Use
  Company Number: US-BRISTOL-MYERS SQUIBB COMPANY-20057980

PATIENT
  Age: 48 Year
  Sex: Male
  Weight: 97.5 kg

DRUGS (4)
  1. BYDUREON [Suspect]
     Route: 058
  2. TRADJENTA [Concomitant]
  3. ACTOS [Concomitant]
  4. LIPITOR [Concomitant]

REACTIONS (1)
  - Injection site swelling [Not Recovered/Not Resolved]
